FAERS Safety Report 24838552 (Version 1)
Quarter: 2025Q1

REPORT INFORMATION
  Report Type: Spontaneous
  Country: US (occurrence: US)
  Receive Date: 20250113
  Receipt Date: 20250113
  Transmission Date: 20250408
  Serious: Yes (Hospitalization, Other)
  Sender: ANI
  Company Number: US-ANIPHARMA-2025-US-000809

PATIENT
  Age: 65 Year
  Sex: Female

DRUGS (12)
  1. LITHOBID [Suspect]
     Active Substance: LITHIUM CARBONATE
     Indication: Bipolar disorder
  2. PRILOSEC [Concomitant]
     Active Substance: OMEPRAZOLE MAGNESIUM
  3. ALEVE [Concomitant]
     Active Substance: NAPROXEN SODIUM
  4. INGREZZA [Suspect]
     Active Substance: VALBENAZINE
     Dates: start: 20240229, end: 20240717
  5. ELIQUIS [Concomitant]
     Active Substance: APIXABAN
  6. WELLBUTRIN XL [Concomitant]
     Active Substance: BUPROPION HYDROCHLORIDE
  7. ATARAX [Concomitant]
     Active Substance: HYDROXYZINE HYDROCHLORIDE
  8. SEROQUEL [Concomitant]
     Active Substance: QUETIAPINE FUMARATE
  9. HYDROXYZINE PAMOATE [Concomitant]
     Active Substance: HYDROXYZINE PAMOATE
  10. INDERAL [Concomitant]
     Active Substance: PROPRANOLOL HYDROCHLORIDE
  11. COZAAR [Concomitant]
     Active Substance: LOSARTAN POTASSIUM
  12. ALENDRONATE [Concomitant]
     Active Substance: ALENDRONATE SODIUM

REACTIONS (23)
  - Cystitis [Unknown]
  - Essential tremor [Unknown]
  - Escherichia sepsis [Unknown]
  - Sepsis [Unknown]
  - Nephrolithiasis [Unknown]
  - Acute kidney injury [Unknown]
  - Toxic encephalopathy [Unknown]
  - Constipation [Unknown]
  - Haemorrhoids [Unknown]
  - Oesophagitis [Unknown]
  - Subclavian artery thrombosis [Recovered/Resolved]
  - Dizziness [Unknown]
  - Dehydration [Unknown]
  - Upper respiratory tract infection [Unknown]
  - Left atrial dilatation [Unknown]
  - Diverticulum intestinal [Unknown]
  - Toxicity to various agents [Recovered/Resolved]
  - Transient ischaemic attack [Recovered/Resolved]
  - Urinary tract infection [Unknown]
  - Hiatus hernia [Unknown]
  - Normocytic anaemia [Unknown]
  - Left ventricular dysfunction [Unknown]
  - Pulmonary arterial hypertension [Unknown]

NARRATIVE: CASE EVENT DATE: 20240601
